FAERS Safety Report 6425841-0 (Version None)
Quarter: 2009Q4

REPORT INFORMATION
  Report Type: 
  Country: None (occurrence: None)
  Receive Date: 20091029
  Receipt Date: 20091021
  Transmission Date: 20100525
  Serious: Yes (Other)
  Sender: FDA-Public Use
  Company Number: 2009011750

PATIENT

DRUGS (1)
  1. TRISENOX [Suspect]
     Dosage: 0.15 MG/KG, INTRAVENOUS DRIP
     Route: 041

REACTIONS (1)
  - ENCEPHALOPATHY [None]
